FAERS Safety Report 6996858-2 (Version None)
Quarter: 2010Q3

REPORT INFORMATION
  Report Type: 
  Country: None (occurrence: None)
  Receive Date: 20100918
  Receipt Date: 20090803
  Transmission Date: 20110219
  Serious: No
  Sender: FDA-Public Use
  Company Number: US-WYE-H10430209

PATIENT
  Age: 62 Year
  Sex: Male

DRUGS (3)
  1. EFFEXOR XR [Suspect]
     Indication: DEPRESSION
     Route: 048
     Dates: start: 20090801
  2. SAW PALMETTO STANDARDIZED [Concomitant]
  3. KLONOPIN [Concomitant]

REACTIONS (3)
  - FATIGUE [None]
  - THERAPEUTIC RESPONSE UNEXPECTED [None]
  - URETHRITIS NONINFECTIVE [None]
